FAERS Safety Report 20381909 (Version 2)
Quarter: 2022Q1

REPORT INFORMATION
  Report Type: Spontaneous
  Country: GR (occurrence: GR)
  Receive Date: 20220127
  Receipt Date: 20220211
  Transmission Date: 20220424
  Serious: Yes (Life-Threatening, Hospitalization, Other)
  Sender: FDA-Public Use
  Company Number: GR-Accord-251647

PATIENT
  Age: 66 Year
  Sex: Female

DRUGS (2)
  1. CAPECITABINE [Suspect]
     Active Substance: CAPECITABINE
     Indication: Adenocarcinoma of colon
     Dosage: 1500 MG BD FOR 2 WEEKS
     Route: 048
  2. OXALIPLATIN [Concomitant]
     Active Substance: OXALIPLATIN
     Indication: Adenocarcinoma of colon
     Dosage: 130 MG/M2 EVERY THREE WEEK
     Route: 042

REACTIONS (7)
  - Enterocolitis [Recovered/Resolved]
  - Mental status changes [Recovering/Resolving]
  - Hypotension [Recovered/Resolved]
  - Peripheral coldness [Unknown]
  - Lactic acidosis [Recovering/Resolving]
  - Pancytopenia [Recovered/Resolved]
  - Myelosuppression [Recovering/Resolving]
